FAERS Safety Report 7315720-9 (Version None)
Quarter: 2011Q1

REPORT INFORMATION
  Report Type: 
  Country: None (occurrence: None)
  Receive Date: 20110225
  Receipt Date: 20100823
  Transmission Date: 20110831
  Serious: Yes (Hospitalization, Disabling, Other)
  Sender: FDA-Public Use
  Company Number: US-BAYER-200934040NA

PATIENT
  Sex: Female
  Weight: 81.633 kg

DRUGS (10)
  1. ADVIL [Concomitant]
  2. YAZ [Suspect]
     Indication: PREMENSTRUAL SYNDROME
     Dosage: UNK
     Route: 048
     Dates: start: 20060101, end: 20080101
  3. MERIDIA [Concomitant]
     Indication: WEIGHT DECREASED
  4. YASMIN [Suspect]
     Indication: PREMENSTRUAL SYNDROME
     Route: 048
     Dates: start: 20050101, end: 20080101
  5. YASMIN [Suspect]
     Dosage: UNK
     Dates: start: 20060101, end: 20080101
  6. YAZ [Suspect]
  7. HYDROCHLOROTHIAZIDE [Concomitant]
  8. LISINOPRIL [Concomitant]
  9. PREVACID [Concomitant]
  10. METOPROLOL SUCCINATE [Concomitant]

REACTIONS (7)
  - HYPOAESTHESIA [None]
  - PAIN [None]
  - OEDEMA PERIPHERAL [None]
  - THROMBOSIS [None]
  - DEEP VEIN THROMBOSIS [None]
  - PARAESTHESIA [None]
  - MYALGIA [None]
